FAERS Safety Report 5875016-9 (Version None)
Quarter: 2008Q3

REPORT INFORMATION
  Report Type: 
  Country: None (occurrence: None)
  Receive Date: 20080908
  Receipt Date: 20080908
  Transmission Date: 20090109
  Serious: No
  Sender: FDA-Public Use
  Company Number: None

PATIENT
  Age: 18 Year
  Sex: Male
  Weight: 63.5036 kg

DRUGS (3)
  1. MINOCIN [Suspect]
     Indication: ACNE
     Dosage: 50 MG  2 TIMES A DAY
     Dates: start: 20040928, end: 20080131
  2. IBUPROFEN [Concomitant]
  3. PROTONIX [Concomitant]

REACTIONS (2)
  - BEDRIDDEN [None]
  - LUPUS-LIKE SYNDROME [None]
